FAERS Safety Report 15148844 (Version 1)
Quarter: 2018Q3

REPORT INFORMATION
  Report Type: Spontaneous
  Country: FR (occurrence: FR)
  Receive Date: 20180716
  Receipt Date: 20180716
  Transmission Date: 20181010
  Serious: Yes (Hospitalization)
  Sender: FDA-Public Use
  Company Number: FR-TEVA-2018-FR-927108

PATIENT
  Age: 13 Year
  Sex: Male
  Weight: 28.9 kg

DRUGS (1)
  1. AMOXICILLINE [Suspect]
     Active Substance: AMOXICILLIN
     Indication: TONSILLITIS
     Route: 048
     Dates: start: 20170628, end: 20170630

REACTIONS (1)
  - Rash pruritic [Recovered/Resolved]

NARRATIVE: CASE EVENT DATE: 20170629
